FAERS Safety Report 23932388 (Version 1)
Quarter: 2024Q2

REPORT INFORMATION
  Report Type: Report from Study
  Country: US (occurrence: US)
  Receive Date: 20240603
  Receipt Date: 20240603
  Transmission Date: 20240716
  Serious: Yes (Other)
  Sender: FDA-Public Use
  Company Number: US-Merck Healthcare KGaA-2023473679

PATIENT
  Age: 65 Year
  Sex: Female

DRUGS (3)
  1. MAVENCLAD [Suspect]
     Active Substance: CLADRIBINE
     Indication: Multiple sclerosis
     Dosage: YEAR ONE THERAPY
     Route: 048
     Dates: start: 20221014
  2. ESTROGENS [Concomitant]
     Active Substance: ESTROGENS
     Indication: Cardiac murmur
  3. PROGESTERONE [Concomitant]
     Active Substance: PROGESTERONE
     Indication: Cardiac murmur

REACTIONS (9)
  - Myocardial injury [Recovering/Resolving]
  - Cardiac disorder [Unknown]
  - Palpitations [Unknown]
  - Illness [Unknown]
  - Mitral valve replacement [Unknown]
  - Blood lead increased [Recovering/Resolving]
  - Blood mercury abnormal [Recovering/Resolving]
  - Blood arsenic increased [Recovering/Resolving]
  - Blood cadmium increased [Recovering/Resolving]

NARRATIVE: CASE EVENT DATE: 20221101
